FAERS Safety Report 24655272 (Version 6)
Quarter: 2025Q2

REPORT INFORMATION
  Report Type: Spontaneous
  Country: JP (occurrence: JP)
  Receive Date: 20241123
  Receipt Date: 20250415
  Transmission Date: 20250717
  Serious: Yes (Death, Other)
  Sender: ABBVIE
  Company Number: JP-ABBVIE-6016401

PATIENT
  Age: 84 Year
  Sex: Male
  Weight: 47 kg

DRUGS (3)
  1. RINVOQ [Suspect]
     Active Substance: UPADACITINIB
     Indication: Dermatitis atopic
     Dosage: FORM STRENGTH: 15 MILLIGRAM
     Route: 048
     Dates: start: 20231206, end: 20240820
  2. RINVOQ [Suspect]
     Active Substance: UPADACITINIB
     Indication: Dermatitis atopic
     Dosage: FORM STRENGTH: 15 MILLIGRAM
     Route: 048
     Dates: start: 20230123, end: 20231201
  3. NADIFLOXACIN [Concomitant]
     Active Substance: NADIFLOXACIN
     Indication: Acne
     Route: 061
     Dates: start: 20230802

REACTIONS (5)
  - Sepsis [Fatal]
  - Squamous cell carcinoma of skin [Recovered/Resolved]
  - COVID-19 [Recovered/Resolved]
  - Escherichia test positive [Unknown]
  - Blood pressure decreased [Unknown]

NARRATIVE: CASE EVENT DATE: 20240401
